FAERS Safety Report 8056963-9 (Version None)
Quarter: 2012Q1

REPORT INFORMATION
  Report Type: 
  Country: None (occurrence: None)
  Receive Date: 20120119
  Receipt Date: 20120117
  Transmission Date: 20120608
  Serious: Yes (Hospitalization)
  Sender: FDA-Public Use
  Company Number: JP-B.I. PHARMACEUTICALS,INC./RIDGEFIELD-2011-BP-28745NB

PATIENT
  Age: 80 Year
  Sex: Male
  Weight: 59.7 kg

DRUGS (6)
  1. CARVEDILOL [Concomitant]
     Indication: CARDIAC FAILURE
     Dosage: 1.25 MG
     Route: 048
     Dates: start: 20100203
  2. PRADAXA [Suspect]
     Indication: ATRIAL FIBRILLATION
     Dosage: 300 MG
     Route: 048
     Dates: start: 20110330, end: 20110907
  3. LENIMEC [Concomitant]
     Indication: CARDIAC FAILURE
     Dosage: 2.5 MG
     Route: 048
     Dates: start: 20110316
  4. NITRODERM [Concomitant]
     Indication: ANGINA PECTORIS
     Dosage: 25 MG
     Route: 065
     Dates: start: 20110330
  5. PRADAXA [Suspect]
     Dosage: 220 MG
     Route: 048
     Dates: start: 20110908, end: 20111012
  6. DILTIAZEM HCL [Concomitant]
     Indication: ANGINA PECTORIS
     Dosage: 30 MG
     Route: 048
     Dates: start: 20110330

REACTIONS (3)
  - EPILEPSY [None]
  - CYSTITIS [None]
  - HAEMATURIA [None]
